FAERS Safety Report 5595434-6 (Version None)
Quarter: 2008Q1

REPORT INFORMATION
  Report Type: 
  Country: None (occurrence: None)
  Receive Date: 20080118
  Receipt Date: 20080109
  Transmission Date: 20080703
  Serious: Yes (Other)
  Sender: FDA-Public Use
  Company Number: US-JNJFOC-20080101892

PATIENT
  Age: 42 Year
  Sex: Male

DRUGS (7)
  1. ITRACONAZOLE [Suspect]
     Route: 065
  2. ITRACONAZOLE [Suspect]
     Indication: HISTOPLASMOSIS DISSEMINATED
     Route: 065
  3. ITRACONAZOLE [Suspect]
     Route: 065
  4. EFAVIRENZ [Interacting]
     Indication: HISTOPLASMOSIS DISSEMINATED
     Route: 065
  5. LAMIVUDINE [Concomitant]
     Route: 065
  6. STAVUDINE [Concomitant]
     Route: 065
  7. AMPHOTERICIN B [Concomitant]
     Route: 065

REACTIONS (2)
  - ANTIBIOTIC LEVEL BELOW THERAPEUTIC [None]
  - DRUG INTERACTION [None]
